FAERS Safety Report 20120138 (Version 20)
Quarter: 2024Q1

REPORT INFORMATION
  Report Type: Spontaneous
  Country: JP (occurrence: JP)
  Receive Date: 20211126
  Receipt Date: 20240306
  Transmission Date: 20240409
  Serious: Yes (Other)
  Sender: FDA-Public Use
  Company Number: JP-ONO-2021JP029538

PATIENT
  Age: 51 Year
  Sex: Male
  Weight: 81.3 kg

DRUGS (31)
  1. YERVOY [Suspect]
     Active Substance: IPILIMUMAB
     Indication: Non-small cell lung cancer recurrent
     Dosage: 79 MG
     Route: 041
     Dates: start: 20210910
  2. YERVOY [Suspect]
     Active Substance: IPILIMUMAB
     Route: 041
     Dates: start: 20211022
  3. YERVOY [Suspect]
     Active Substance: IPILIMUMAB
  4. OPDIVO [Suspect]
     Active Substance: NIVOLUMAB
     Indication: Non-small cell lung cancer recurrent
     Dosage: 240 MG
     Route: 041
     Dates: start: 20210910
  5. OPDIVO [Suspect]
     Active Substance: NIVOLUMAB
     Route: 041
     Dates: start: 20211022
  6. TAXOL [Suspect]
     Active Substance: PACLITAXEL
     Indication: Non-small cell lung cancer recurrent
     Route: 041
     Dates: start: 20210910, end: 20211022
  7. CARBOPLATIN [Suspect]
     Active Substance: CARBOPLATIN
     Indication: Non-small cell lung cancer recurrent
     Route: 041
     Dates: start: 20210910, end: 20211022
  8. PREDONINE [Suspect]
     Active Substance: PREDNISOLONE
     Indication: Rash
     Dosage: 70 MG
     Route: 048
     Dates: start: 20210919, end: 20210920
  9. PREDONINE [Suspect]
     Active Substance: PREDNISOLONE
     Dosage: 70 MG
     Route: 048
     Dates: start: 20210924, end: 20210927
  10. PREDONINE [Suspect]
     Active Substance: PREDNISOLONE
     Dosage: 35 MG
     Route: 048
     Dates: start: 20210928, end: 20210930
  11. PREDONINE [Suspect]
     Active Substance: PREDNISOLONE
     Dosage: 20 MG
     Route: 048
     Dates: start: 20211001, end: 20211005
  12. PREDONINE [Suspect]
     Active Substance: PREDNISOLONE
     Dosage: 10 MG
     Route: 048
     Dates: start: 20211006, end: 20211014
  13. PREDONINE [Suspect]
     Active Substance: PREDNISOLONE
     Dosage: 60 MG
     Route: 048
     Dates: start: 20211026
  14. PREDONINE [Suspect]
     Active Substance: PREDNISOLONE
     Dosage: 30 MG
     Route: 048
  15. PREDONINE [Suspect]
     Active Substance: PREDNISOLONE
     Dosage: 20 MG
     Route: 048
     Dates: start: 20211102
  16. PREDONINE [Suspect]
     Active Substance: PREDNISOLONE
     Dosage: 15 MG
     Route: 048
  17. PREDONINE [Suspect]
     Active Substance: PREDNISOLONE
     Dosage: 10 MG
     Route: 048
  18. PREDONINE [Suspect]
     Active Substance: PREDNISOLONE
     Route: 048
  19. PREDONINE [Suspect]
     Active Substance: PREDNISOLONE
     Route: 048
  20. PREDONINE [Suspect]
     Active Substance: PREDNISOLONE
     Route: 048
  21. FEBUXOSTAT [Concomitant]
     Active Substance: FEBUXOSTAT
     Indication: Product used for unknown indication
     Dosage: 10 MG, EVERYDAY
     Route: 048
     Dates: start: 2017
  22. FEBUXOSTAT [Concomitant]
     Active Substance: FEBUXOSTAT
  23. AMLODIPINE [Concomitant]
     Active Substance: AMLODIPINE BESYLATE
     Indication: Hypertension
     Dosage: 5 MG, EVERYDAY
     Route: 048
     Dates: start: 2017, end: 20210920
  24. AMLODIPINE [Concomitant]
     Active Substance: AMLODIPINE BESYLATE
  25. AZILSARTAN KAMEDOXOMIL [Concomitant]
     Active Substance: AZILSARTAN KAMEDOXOMIL
     Indication: Product used for unknown indication
     Dosage: 20 MG, EVERYDAY
     Route: 048
     Dates: start: 2017, end: 20210920
  26. AZILSARTAN KAMEDOXOMIL [Concomitant]
     Active Substance: AZILSARTAN KAMEDOXOMIL
  27. ACETAMINOPHEN [Concomitant]
     Active Substance: ACETAMINOPHEN
     Indication: Metastatic renal cell carcinoma
     Dosage: 2000 MG, Q6H
     Route: 048
     Dates: start: 20210915, end: 20211126
  28. ACETAMINOPHEN [Concomitant]
     Active Substance: ACETAMINOPHEN
     Indication: Non-small cell lung cancer recurrent
  29. FEBUXOSTAT [Concomitant]
     Active Substance: FEBUXOSTAT
     Indication: Product used for unknown indication
     Route: 048
     Dates: start: 2017, end: 2017
  30. FEBUXOSTAT [Concomitant]
     Active Substance: FEBUXOSTAT
     Route: 048
     Dates: start: 20210910
  31. AZILSARTAN KAMEDOXOMIL [Concomitant]
     Active Substance: AZILSARTAN KAMEDOXOMIL
     Indication: Hypertension
     Route: 048
     Dates: start: 2017, end: 20210920

REACTIONS (5)
  - Rash [Unknown]
  - Retinal detachment [Not Recovered/Not Resolved]
  - Pyrexia [Unknown]
  - Hepatic function abnormal [Recovered/Resolved]
  - Nausea [Unknown]

NARRATIVE: CASE EVENT DATE: 20210918
